FAERS Safety Report 5394745-7 (Version None)
Quarter: 2007Q3

REPORT INFORMATION
  Report Type: 
  Country: None (occurrence: None)
  Receive Date: 20070723
  Receipt Date: 20070716
  Transmission Date: 20080115
  Serious: Yes (Death)
  Sender: FDA-Public Use
  Company Number: FR-MERCK-0707FRA00036

PATIENT
  Age: 17 Year
  Sex: Male

DRUGS (20)
  1. CANCIDAS [Suspect]
     Indication: BRONCHOPULMONARY ASPERGILLOSIS
     Route: 042
     Dates: start: 20070519, end: 20070523
  2. CILASTATIN SODIUM AND IMIPENEM [Suspect]
     Route: 042
     Dates: start: 20070518, end: 20070520
  3. CYTARABINE [Suspect]
     Indication: ACUTE MYELOID LEUKAEMIA
     Route: 042
     Dates: start: 20070424, end: 20070501
  4. CYTARABINE [Suspect]
     Route: 051
     Dates: start: 20070427, end: 20070427
  5. CYTARABINE [Suspect]
     Route: 051
     Dates: start: 20070509, end: 20070509
  6. CYTARABINE [Suspect]
     Route: 042
     Dates: start: 20070516, end: 20070518
  7. AMSACRINE [Suspect]
     Indication: ACUTE MYELOID LEUKAEMIA
     Route: 042
     Dates: start: 20070516, end: 20070518
  8. PIPERACILLIN SODIUM AND TAZOBACTAM SODIUM [Suspect]
     Indication: HYPERTHERMIA
     Route: 042
     Dates: start: 20070430, end: 20070520
  9. AMIKACIN SULFATE [Suspect]
     Indication: HYPERTHERMIA
     Route: 042
     Dates: start: 20070430, end: 20070523
  10. VORICONAZOLE [Suspect]
     Route: 042
     Dates: start: 20070518, end: 20070519
  11. METRONIDAZOLE [Suspect]
     Route: 042
     Dates: start: 20070518, end: 20070524
  12. CEFTAZIDIME [Suspect]
     Route: 042
     Dates: start: 20070518, end: 20070524
  13. METHOTREXATE [Suspect]
     Indication: ACUTE MYELOID LEUKAEMIA
     Route: 051
     Dates: start: 20070427, end: 20070427
  14. METHOTREXATE [Suspect]
     Route: 051
     Dates: start: 20070509, end: 20070509
  15. DAUNORUBICIN HYDROCHLORIDE [Suspect]
     Indication: ACUTE MYELOID LEUKAEMIA
     Route: 042
     Dates: start: 20070424, end: 20070424
  16. HYDROXYUREA [Suspect]
     Indication: ACUTE MYELOID LEUKAEMIA
     Route: 048
     Dates: start: 20070423, end: 20070425
  17. MERCAPTOPURINE [Suspect]
     Indication: ACUTE MYELOID LEUKAEMIA
     Route: 048
     Dates: start: 20070423, end: 20070423
  18. MITOXANTRONE HYDROCHLORIDE [Suspect]
     Indication: ACUTE MYELOID LEUKAEMIA
     Route: 042
     Dates: start: 20070425, end: 20070429
  19. VANCOMYCIN [Concomitant]
     Indication: HYPERTHERMIA
     Route: 051
     Dates: start: 20070510
  20. AMPHOTERICIN B [Concomitant]
     Indication: HYPERTHERMIA
     Route: 051
     Dates: start: 20070510

REACTIONS (3)
  - ARRHYTHMIA [None]
  - CARDIO-RESPIRATORY ARREST [None]
  - CEREBELLAR SYNDROME [None]
